FAERS Safety Report 8846824 (Version 1)
Quarter: 2012Q4

REPORT INFORMATION
  Report Type: 
  Country: US (occurrence: US)
  Receive Date: 20121018
  Receipt Date: 20121018
  Transmission Date: 20130627
  Serious: Yes (Other)
  Sender: FDA-Public Use
  Company Number: US-BRISTOL-MYERS SQUIBB COMPANY-17029323

PATIENT
  Age: 63 Year
  Sex: Female

DRUGS (1)
  1. ONGLYZA TABS [Suspect]
     Dosage: started 2 years ago

REACTIONS (1)
  - Pancreatic carcinoma [Unknown]
